FAERS Safety Report 11003786 (Version 2)
Quarter: 2015Q2

REPORT INFORMATION
  Report Type: Report from Study
  Country: BE (occurrence: BE)
  Receive Date: 20150409
  Receipt Date: 20150429
  Transmission Date: 20150821
  Serious: Yes (Other)
  Sender: FDA-Public Use
  Company Number: BE-AMGEN-BELNI2015033172

PATIENT
  Age: 60 Year
  Sex: Male

DRUGS (14)
  1. BISACODYL. [Concomitant]
     Active Substance: BISACODYL
  2. L-THYROXIN [Concomitant]
     Active Substance: LEVOTHYROXINE SODIUM
     Dosage: 100 MUG, QD
  3. LISTERINE                          /00178701/ [Concomitant]
     Dosage: UNK
  4. FORLAX [Concomitant]
     Active Substance: POLYETHYLENE GLYCOL 4000
     Dosage: UNK UNK, AS NECESSARY
  5. OMEPRAZOLE. [Concomitant]
     Active Substance: OMEPRAZOLE
     Dosage: 20 MG, UNK
  6. XGEVA [Suspect]
     Active Substance: DENOSUMAB
     Indication: PRODUCT USED FOR UNKNOWN INDICATION
     Dosage: 120 MG, QMO
     Route: 058
     Dates: start: 201307, end: 20141003
  7. SUTENT [Concomitant]
     Active Substance: SUNITINIB MALATE
     Dosage: 50 MG, QD
     Dates: start: 201111
  8. ALGIPAN                            /00165001/ [Concomitant]
     Dosage: UNK UNK, AS NECESSARY
  9. IMODIUM [Concomitant]
     Active Substance: LOPERAMIDE HYDROCHLORIDE
     Dosage: UNK UNK, AS NECESSARY
  10. DENOSUMAB [Suspect]
     Active Substance: DENOSUMAB
     Indication: PRODUCT USED FOR UNKNOWN INDICATION
     Route: 065
  11. PERIO AID [Concomitant]
     Dosage: UNK UNK, TID
  12. CALCITE + D [Concomitant]
     Dosage: UNK UNK, QD (IN THE EVENING)
  13. STEOVIT D3 [Concomitant]
     Dosage: 1000/880
  14. PRAVASTATIN [Concomitant]
     Active Substance: PRAVASTATIN\PRAVASTATIN SODIUM
     Dosage: 20 MG, QD

REACTIONS (1)
  - Osteonecrosis of jaw [Recovering/Resolving]

NARRATIVE: CASE EVENT DATE: 20150109
